FAERS Safety Report 26050225 (Version 1)
Quarter: 2025Q4

REPORT INFORMATION
  Report Type: Spontaneous
  Country: US (occurrence: US)
  Receive Date: 20251116
  Receipt Date: 20251116
  Transmission Date: 20260118
  Serious: No
  Sender: NOVARTIS
  Company Number: US-002147023-NVSC2025US175705

PATIENT
  Age: 43 Year
  Sex: Male

DRUGS (1)
  1. COSENTYX [Suspect]
     Active Substance: SECUKINUMAB
     Indication: Hidradenitis
     Dosage: 300 MG, QMO
     Route: 065
     Dates: start: 2023

REACTIONS (2)
  - Condition aggravated [Not Recovered/Not Resolved]
  - Hyperhidrosis [Not Recovered/Not Resolved]
